FAERS Safety Report 8213170-4 (Version None)
Quarter: 2012Q1

REPORT INFORMATION
  Report Type: 
  Country: None (occurrence: None)
  Receive Date: 20120315
  Receipt Date: 20120308
  Transmission Date: 20120608
  Serious: Yes (Hospitalization, Other)
  Sender: FDA-Public Use
  Company Number: US-TEVA-327281USA

PATIENT
  Sex: Male

DRUGS (3)
  1. DIURETIC [Concomitant]
  2. AMIODARONE HYDROCHLORIDE [Suspect]
     Indication: GOUT
  3. COLCHICINE [Suspect]
     Indication: GOUT
     Dosage: 1.2 MILLIGRAM;

REACTIONS (2)
  - CREATININE RENAL CLEARANCE DECREASED [None]
  - TOXICITY TO VARIOUS AGENTS [None]
